FAERS Safety Report 6855831-5 (Version None)
Quarter: 2010Q3

REPORT INFORMATION
  Report Type: 
  Country: None (occurrence: None)
  Receive Date: 20100715
  Receipt Date: 20100715
  Transmission Date: 20110219
  Serious: No
  Sender: FDA-Public Use
  Company Number: None

PATIENT
  Sex: Male
  Weight: 102.5129 kg

DRUGS (8)
  1. EFFIENT [Suspect]
     Indication: ATRIAL FIBRILLATION
  2. NORVASC [Concomitant]
  3. AFRIN [Concomitant]
  4. MULTAQ [Concomitant]
  5. CENTRUM [Concomitant]
  6. LISINOPRIL [Concomitant]
  7. TYLENOL [Concomitant]
  8. ZOCOR [Concomitant]

REACTIONS (1)
  - RASH MACULO-PAPULAR [None]
